FAERS Safety Report 7126166-0 (Version None)
Quarter: 2010Q4

REPORT INFORMATION
  Report Type: 
  Country: None (occurrence: None)
  Receive Date: 20101129
  Receipt Date: 20101123
  Transmission Date: 20110411
  Serious: Yes (Other)
  Sender: FDA-Public Use
  Company Number: BR-PFIZER INC-2010125486

PATIENT
  Age: 64 Year
  Sex: Female
  Weight: 50 kg

DRUGS (8)
  1. CHAMPIX [Suspect]
     Indication: TOBACCO USER
     Dosage: UNK
     Route: 048
     Dates: start: 20100823
  2. ASPIRIN [Concomitant]
     Indication: CARDIOVASCULAR EVENT PROPHYLAXIS
     Dosage: UNK
     Dates: start: 20070101
  3. VITAMIN D [Concomitant]
     Dosage: UNK
  4. OSCAL 500-D [Concomitant]
     Indication: OSTEOPOROSIS
     Dosage: UNK
  5. SIMVASTATIN [Concomitant]
     Indication: BLOOD CHOLESTEROL INCREASED
     Dosage: 10 MG, ALTERNATE DAY
     Dates: start: 20070101
  6. ALENDRONATE SODIUM [Concomitant]
     Indication: OSTEOPOROSIS
     Dosage: 70 MG, WEEKLY
     Dates: start: 20090101
  7. CITALOPRAM [Concomitant]
     Indication: ANXIETY
     Dosage: UNK
  8. VALERIAN EXTRACT [Concomitant]
     Indication: ANXIETY
     Dosage: UNK

REACTIONS (13)
  - ABDOMINAL PAIN [None]
  - ABNORMAL DREAMS [None]
  - ANXIETY [None]
  - BRONCHIAL DISORDER [None]
  - COUGH [None]
  - DYSGEUSIA [None]
  - FATIGUE [None]
  - HAEMATURIA [None]
  - NAUSEA [None]
  - NIGHTMARE [None]
  - RENAL IMPAIRMENT [None]
  - RENAL PAIN [None]
  - URINARY TRACT INFECTION [None]
